FAERS Safety Report 4739978-5 (Version None)
Quarter: 2005Q3

REPORT INFORMATION
  Report Type: 
  Country: None (occurrence: None)
  Receive Date: 20050810
  Receipt Date: 20031103
  Transmission Date: 20060218
  Serious: No
  Sender: FDA-Public Use
  Company Number: US-GLAXOSMITHKLINE-A0433021A

PATIENT
  Age: 39 Year
  Sex: Male

DRUGS (3)
  1. PAXIL [Suspect]
     Indication: DEPRESSION
     Dosage: 30MG PER DAY
     Route: 048
     Dates: start: 20030601, end: 20040101
  2. COPAXONE [Concomitant]
  3. WELLBUTRIN [Concomitant]

REACTIONS (1)
  - EJACULATION DELAYED [None]
